FAERS Safety Report 8623289-1 (Version None)
Quarter: 2012Q3

REPORT INFORMATION
  Report Type: 
  Country: None (occurrence: None)
  Receive Date: 20120827
  Receipt Date: 20120821
  Transmission Date: 20120928
  Serious: Yes (Other)
  Sender: FDA-Public Use
  Company Number: 2012SP002348

PATIENT
  Age: 79 Year
  Sex: Female

DRUGS (6)
  1. LUNESTA [Suspect]
     Indication: PRODUCT USED FOR UNKNOWN INDICATION
     Route: 048
  2. OXYCONTIN [Suspect]
     Indication: PAIN
  3. OXYCONTIN [Suspect]
  4. LEXAPRO [Suspect]
     Indication: DEPRESSION
     Dates: start: 20070101
  5. MORPHINE [Suspect]
     Indication: PAIN
     Dates: start: 20111101, end: 20120201
  6. VICODIN [Concomitant]
     Indication: PAIN

REACTIONS (6)
  - CRYING [None]
  - HALLUCINATION, VISUAL [None]
  - DRUG INTERACTION [None]
  - TOXICITY TO VARIOUS AGENTS [None]
  - HALLUCINATION, AUDITORY [None]
  - SOMNOLENCE [None]
